FAERS Safety Report 8489743-0 (Version None)
Quarter: 2012Q3

REPORT INFORMATION
  Report Type: 
  Country: None (occurrence: None)
  Receive Date: 20120705
  Receipt Date: 20120627
  Transmission Date: 20120928
  Serious: Yes (Hospitalization)
  Sender: FDA-Public Use
  Company Number: BR-GLAXOSMITHKLINE-B0812094A

PATIENT
  Sex: Female
  Weight: 55 kg

DRUGS (9)
  1. METFORMIN + SITAGLIPTIN [Concomitant]
     Indication: DIABETES MELLITUS
     Dosage: 1TAB PER DAY
     Route: 048
  2. ALENDRONATE SODIUM [Concomitant]
     Indication: OSTEOPOROSIS
     Dosage: 70MG WEEKLY
     Route: 048
  3. PROPAFENONE HCL [Suspect]
     Indication: ARRHYTHMIA
     Dosage: 150MG TWICE PER DAY
     Route: 048
     Dates: start: 20120201
  4. SIMETHICONE [Concomitant]
     Indication: GASTROINTESTINAL DISORDER
     Route: 048
  5. COLECALCIFEROL + CALCIUM CARBONATE [Concomitant]
     Indication: OSTEOPOROSIS
     Dosage: 1TAB PER DAY
     Route: 048
  6. METFORMIN HCL [Concomitant]
     Indication: DIABETES MELLITUS
     Dosage: 500MG PER DAY
     Route: 048
  7. PANTOPRAZOLE [Concomitant]
     Indication: GASTRIC DISORDER
     Dosage: 40MG TWICE PER DAY
     Route: 048
  8. HYZAAR [Concomitant]
     Indication: HYPERTENSION
     Dosage: 1TAB PER DAY
     Route: 048
  9. CALCIUM CARBONATE [Concomitant]
     Indication: OSTEOPOROSIS
     Dosage: 500MG PER DAY
     Route: 048

REACTIONS (3)
  - NAUSEA [None]
  - URINARY TRACT INFECTION [None]
  - VOMITING [None]
